FAERS Safety Report 10089334 (Version 2)
Quarter: 2014Q2

REPORT INFORMATION
  Report Type: Spontaneous
  Country: US (occurrence: US)
  Receive Date: 20140421
  Receipt Date: 20140513
  Transmission Date: 20141212
  Serious: No
  Sender: FDA-Public Use
  Company Number: US-UCBSA-118279

PATIENT
  Age: 44 Year
  Sex: Male
  Weight: 97.52 kg

DRUGS (2)
  1. KEPPRA XR [Suspect]
     Indication: CONVULSION PROPHYLAXIS
     Dosage: 500 MG TABLETS, FREQUENCY: EVERY 12 HOURS
     Route: 048
     Dates: start: 201402
  2. DECADRON [Suspect]
     Dosage: TAPERED OFF
     Route: 048
     Dates: start: 201402, end: 2014

REACTIONS (3)
  - Weight increased [Not Recovered/Not Resolved]
  - Somnolence [Not Recovered/Not Resolved]
  - Inappropriate schedule of drug administration [Not Recovered/Not Resolved]
